FAERS Safety Report 23033027 (Version 1)
Quarter: 2023Q4

REPORT INFORMATION
  Report Type: Spontaneous
  Country: GR (occurrence: GR)
  Receive Date: 20231005
  Receipt Date: 20231005
  Transmission Date: 20240109
  Serious: Yes (Death, Hospitalization, Other)
  Sender: FDA-Public Use
  Company Number: GR-AMGEN-GRCSP2023172444

PATIENT

DRUGS (1)
  1. CARFILZOMIB [Suspect]
     Active Substance: CARFILZOMIB
     Indication: Plasma cell myeloma refractory
     Dosage: UNK
     Route: 065

REACTIONS (71)
  - Death [Fatal]
  - Peritonitis [Fatal]
  - Atrial tachycardia [Unknown]
  - Osteomyelitis [Unknown]
  - Bradycardia [Unknown]
  - Pancytopenia [Unknown]
  - Carpal tunnel decompression [Unknown]
  - Eastern Cooperative Oncology Group performance status worsened [Unknown]
  - Plasma cell myeloma [Unknown]
  - Syncope [Unknown]
  - Septic shock [Fatal]
  - Lower respiratory tract infection [Fatal]
  - Platelet count decreased [Unknown]
  - Insomnia [Unknown]
  - Hyperuricaemia [Unknown]
  - Bone pain [Unknown]
  - Pneumonia [Unknown]
  - Acute kidney injury [Unknown]
  - Anaemia [Unknown]
  - Fatigue [Unknown]
  - Hypocalcaemia [Unknown]
  - Hyperglycaemia [Unknown]
  - Blood creatinine increased [Unknown]
  - Hyperkalaemia [Unknown]
  - Hypertension [Unknown]
  - Thrombocytopenia [Unknown]
  - Atrial fibrillation [Unknown]
  - Cerebrovascular accident [Unknown]
  - Hyponatraemia [Unknown]
  - Myocardial infarction [Unknown]
  - Deep vein thrombosis [Unknown]
  - Thrombotic thrombocytopenic purpura [Unknown]
  - Pneumonitis [Unknown]
  - Haemolytic uraemic syndrome [Unknown]
  - Hypokalaemia [Unknown]
  - Hypercalcaemia [Unknown]
  - Dysphoria [Unknown]
  - Ear pain [Unknown]
  - External ear inflammation [Unknown]
  - Fracture [Unknown]
  - Gastritis [Unknown]
  - Groin pain [Unknown]
  - Gastrooesophageal reflux disease [Unknown]
  - Leukocytosis [Unknown]
  - Somnolence [Unknown]
  - Swelling [Unknown]
  - Tension [Unknown]
  - Weight decreased [Unknown]
  - Laryngitis [Unknown]
  - Decreased appetite [Unknown]
  - Hypomagnesaemia [Unknown]
  - Influenza like illness [Unknown]
  - Neutrophil count decreased [Unknown]
  - Oropharyngeal pain [Unknown]
  - Rhinitis [Unknown]
  - Upper respiratory tract infection [Unknown]
  - Therapy non-responder [Unknown]
  - Therapy partial responder [Unknown]
  - Constipation [Unknown]
  - Dyspnoea [Unknown]
  - Back pain [Unknown]
  - Headache [Unknown]
  - Musculoskeletal pain [Unknown]
  - Pain in extremity [Unknown]
  - Pyrexia [Unknown]
  - Urinary tract infection [Unknown]
  - Abdominal pain [Unknown]
  - Nausea [Unknown]
  - Oedema peripheral [Unknown]
  - Diarrhoea [Unknown]
  - Cough [Unknown]
